FAERS Safety Report 24965938 (Version 3)
Quarter: 2025Q1

REPORT INFORMATION
  Report Type: Spontaneous
  Country: US (occurrence: US)
  Receive Date: 20250213
  Receipt Date: 20250217
  Transmission Date: 20250408
  Serious: Yes (Hospitalization)
  Sender: PFIZER
  Company Number: US-MLMSERVICE-20250203-PI390071-00229-1

PATIENT
  Age: 57 Year
  Sex: Female

DRUGS (9)
  1. MORPHINE SULFATE [Suspect]
     Active Substance: MORPHINE SULFATE
     Indication: Analgesic therapy
     Route: 037
  2. MORPHINE SULFATE [Suspect]
     Active Substance: MORPHINE SULFATE
     Route: 037
  3. MORPHINE SULFATE [Suspect]
     Active Substance: MORPHINE SULFATE
  4. BUPIVACAINE [Concomitant]
     Active Substance: BUPIVACAINE
     Indication: Analgesic therapy
     Route: 037
  5. BUPIVACAINE [Concomitant]
     Active Substance: BUPIVACAINE
     Route: 037
  6. BUPIVACAINE [Concomitant]
     Active Substance: BUPIVACAINE
     Route: 037
  7. ZICONOTIDE [Concomitant]
     Active Substance: ZICONOTIDE
     Indication: Analgesic therapy
     Route: 037
  8. ZICONOTIDE [Concomitant]
     Active Substance: ZICONOTIDE
     Dosage: 4 MG, DAILY
     Route: 037
  9. ZICONOTIDE [Concomitant]
     Active Substance: ZICONOTIDE
     Route: 037

REACTIONS (5)
  - Device infusion issue [Unknown]
  - Drug dose omission by device [Unknown]
  - Akathisia [Unknown]
  - Sedation [Unknown]
  - Drug withdrawal syndrome [Unknown]
